FAERS Safety Report 5721616-6 (Version None)
Quarter: 2008Q2

REPORT INFORMATION
  Report Type: 
  Country: None (occurrence: None)
  Receive Date: 20080429
  Receipt Date: 20070315
  Transmission Date: 20081010
  Serious: Yes (Hospitalization)
  Sender: FDA-Public Use
  Company Number: US-ASTRAZENECA-2007UW04895

PATIENT
  Age: 38 Year
  Sex: Female

DRUGS (7)
  1. NEXIUM [Suspect]
     Indication: DYSPEPSIA
     Route: 048
     Dates: start: 20061201, end: 20070201
  2. WELLBUTRIN XL [Suspect]
     Indication: DEPRESSION
     Route: 048
  3. DILTIAZEM HYDROCHLORIDE [Suspect]
     Indication: HEART RATE INCREASED
     Route: 048
     Dates: start: 20070220, end: 20070222
  4. FLUOXETINE HYDROCHLORIDE [Concomitant]
  5. FLUTICASONE SALMETEROL [Concomitant]
  6. BUDESONIDE [Concomitant]
  7. SALBUTAMOL SULPHATE [Concomitant]

REACTIONS (4)
  - BLOOD PRESSURE DECREASED [None]
  - DYSPEPSIA [None]
  - HEADACHE [None]
  - HEART RATE INCREASED [None]
